FAERS Safety Report 4338291-8 (Version None)
Quarter: 2004Q2

REPORT INFORMATION
  Report Type: 
  Country: None (occurrence: None)
  Receive Date: 20040407
  Receipt Date: 20040325
  Transmission Date: 20050107
  Serious: Yes (Death, Life-Threatening, Hospitalization)
  Sender: FDA-Public Use
  Company Number: GB-JNJFOC-20040302620

PATIENT
  Age: 84 Year
  Sex: Female

DRUGS (3)
  1. RISPERDAL [Suspect]
     Indication: DEMENTIA
     Dosage: SEE IMAGE
     Dates: start: 20020101
  2. RISPERDAL [Suspect]
     Indication: DEMENTIA
     Dosage: SEE IMAGE
     Dates: start: 20020901
  3. RISPERDAL [Suspect]
     Indication: DEMENTIA
     Dosage: SEE IMAGE
     Dates: start: 20021101

REACTIONS (11)
  - AGITATION [None]
  - APHAGIA [None]
  - CANDIDIASIS [None]
  - CEREBROVASCULAR ACCIDENT [None]
  - FALL [None]
  - GENERAL PHYSICAL HEALTH DETERIORATION [None]
  - PAIN [None]
  - PNEUMONIA [None]
  - SOMNOLENCE [None]
  - SUBDURAL HAEMORRHAGE [None]
  - TRANSIENT ISCHAEMIC ATTACK [None]
